FAERS Safety Report 4434324-9 (Version None)
Quarter: 2004Q3

REPORT INFORMATION
  Report Type: 
  Country: None (occurrence: None)
  Receive Date: 20040825
  Receipt Date: 20040809
  Transmission Date: 20050211
  Serious: Yes (Other)
  Sender: FDA-Public Use
  Company Number: M2004.1088

PATIENT
  Age: 73 Year
  Sex: Female

DRUGS (5)
  1. RIMACTANE [Suspect]
     Indication: ENDOCARDITIS
     Dosage: 600 MG, BID, PO
     Route: 048
     Dates: start: 20040721
  2. FLUCLOXACILLIN [Concomitant]
  3. LISINOPRIL [Concomitant]
  4. LACIDIPINE [Concomitant]
  5. FUROSEMIDE [Concomitant]

REACTIONS (1)
  - AGEUSIA [None]
